FAERS Safety Report 7499637-5 (Version None)
Quarter: 2011Q2

REPORT INFORMATION
  Report Type: 
  Country: None (occurrence: None)
  Receive Date: 20110524
  Receipt Date: 20110517
  Transmission Date: 20111010
  Serious: Yes (Death, Hospitalization)
  Sender: FDA-Public Use
  Company Number: US-ROCHE-762258

PATIENT
  Sex: Female
  Weight: 53.6 kg

DRUGS (21)
  1. PACLITAXEL [Suspect]
     Dosage: EVER 21 DAYS
     Route: 042
     Dates: start: 20100628, end: 20100628
  2. MEGACE [Concomitant]
     Dates: start: 20100608
  3. ALBUTEROL SULFATE AUTOHALER [Concomitant]
     Dates: start: 20100408
  4. BEVACIZUMAB [Suspect]
     Dosage: EVER 21 DAYS
     Route: 042
     Dates: start: 20100628, end: 20100628
  5. HYDROXYZINE [Concomitant]
  6. ZANTAC [Concomitant]
     Dates: start: 20100628
  7. TEMAZ [Concomitant]
  8. AMLODIPINE BESYLATE [Concomitant]
     Dates: start: 20090101
  9. VISTARIL [Concomitant]
     Dates: start: 20100412
  10. NUCYNTA [Concomitant]
  11. ASPIRIN [Concomitant]
     Dates: start: 20100408
  12. BENADRYL [Concomitant]
     Dates: start: 20100628
  13. HYDROCHLOROTHIAZIDE [Concomitant]
     Dates: start: 20100608
  14. ADVAIR DISKUS 100/50 [Concomitant]
  15. DECADRON [Concomitant]
     Dates: start: 20100628
  16. CARBOPLATIN [Suspect]
     Dosage: EVER 21 DAYS
     Route: 042
     Dates: start: 20100628, end: 20100628
  17. ZOMETA [Concomitant]
     Dates: start: 20100628
  18. POTASSIUM CHLORIDE [Concomitant]
     Dates: start: 20090101
  19. LISINOPRIL [Concomitant]
  20. ZOFRAN [Concomitant]
     Dates: start: 20100628
  21. RESTORIL [Concomitant]
     Dates: start: 20100608

REACTIONS (6)
  - DEHYDRATION [None]
  - CARDIO-RESPIRATORY ARREST [None]
  - VOMITING [None]
  - DIARRHOEA [None]
  - NEUTROPENIA [None]
  - HYPOTENSION [None]
